FAERS Safety Report 23549070 (Version 1)
Quarter: 2024Q1

REPORT INFORMATION
  Report Type: Report from Study
  Country: US (occurrence: US)
  Receive Date: 20240221
  Receipt Date: 20240221
  Transmission Date: 20240409
  Serious: Yes (Hospitalization, Other)
  Sender: FDA-Public Use
  Company Number: US-ARGENX-2023-ARGX-US003544

PATIENT

DRUGS (2)
  1. VYVGART [Suspect]
     Active Substance: EFGARTIGIMOD ALFA-FCAB
     Indication: Myasthenia gravis
     Dosage: 10 MG/KG
     Route: 042
     Dates: start: 20231004
  2. VYVGART [Suspect]
     Active Substance: EFGARTIGIMOD ALFA-FCAB
     Dosage: UNK
     Route: 042
     Dates: end: 20231206

REACTIONS (18)
  - Cellulitis [Unknown]
  - Pneumonia [Unknown]
  - Oesophageal ulcer [Unknown]
  - Fatigue [Unknown]
  - Dizziness [Unknown]
  - Dyspnoea exertional [Unknown]
  - Oxygen saturation decreased [Unknown]
  - Muscle spasms [Unknown]
  - Musculoskeletal chest pain [Unknown]
  - Back pain [Unknown]
  - Animal scratch [Unknown]
  - Myalgia [Unknown]
  - Asthenia [Unknown]
  - Gait disturbance [Unknown]
  - Dyspnoea [Unknown]
  - Swelling face [Unknown]
  - Swollen tongue [Unknown]
  - Therapy cessation [Unknown]

NARRATIVE: CASE EVENT DATE: 20240215
